FAERS Safety Report 9643735 (Version 3)
Quarter: 2015Q1

REPORT INFORMATION
  Report Type: Report from Study
  Country: US (occurrence: US)
  Receive Date: 20131024
  Receipt Date: 20150116
  Transmission Date: 20150721
  Serious: Yes (Death)
  Sender: FDA-Public Use
  Company Number: US-ROCHE-1212866

PATIENT
  Sex: Female

DRUGS (2)
  1. XELODA [Suspect]
     Active Substance: CAPECITABINE
     Indication: BREAST CANCER
     Dosage: 3 TABS 2 TIMES PER DAY FOR 14 DAYS AND 7 DAYS OFF
     Route: 048
     Dates: start: 20130320
  2. XELODA [Suspect]
     Active Substance: CAPECITABINE
     Indication: METASTASES TO LIVER
     Dosage: 6 TABS 2 TIMES PER DAY FOR 14 DAYS AND 7 DAYS OFF
     Route: 048

REACTIONS (2)
  - Headache [Unknown]
  - Death [Fatal]
